FAERS Safety Report 9894081 (Version 1)
Quarter: 2014Q1

REPORT INFORMATION
  Report Type: Spontaneous
  Country: FR (occurrence: FR)
  Receive Date: 20140213
  Receipt Date: 20140213
  Transmission Date: 20141002
  Serious: Yes (Hospitalization)
  Sender: FDA-Public Use
  Company Number: FR-ABBVIE-14P-056-1200884-00

PATIENT
  Age: 91 Year
  Sex: Female

DRUGS (19)
  1. MICROPAKINE [Suspect]
     Indication: PRODUCT USED FOR UNKNOWN INDICATION
     Route: 048
     Dates: start: 20131203
  2. XANAX [Suspect]
     Indication: PRODUCT USED FOR UNKNOWN INDICATION
     Route: 048
     Dates: end: 20131021
  3. XANAX [Suspect]
     Route: 048
     Dates: start: 20131022
  4. EFFEXOR [Suspect]
     Indication: PRODUCT USED FOR UNKNOWN INDICATION
     Route: 048
     Dates: start: 20131203
  5. SERESTA [Suspect]
     Indication: PRODUCT USED FOR UNKNOWN INDICATION
     Route: 048
     Dates: start: 20131203
  6. DIPIPERON [Suspect]
     Indication: PRODUCT USED FOR UNKNOWN INDICATION
     Dates: start: 20131022, end: 20131022
  7. DEROXAT [Suspect]
     Indication: PRODUCT USED FOR UNKNOWN INDICATION
     Route: 048
     Dates: start: 20131013, end: 20131021
  8. DEROXAT [Suspect]
     Route: 048
     Dates: start: 20131022, end: 20131121
  9. VENLAFAXINE HYDROCHLORIDE [Concomitant]
     Indication: PRODUCT USED FOR UNKNOWN INDICATION
     Dates: start: 20131121
  10. LASILIX [Concomitant]
     Indication: PRODUCT USED FOR UNKNOWN INDICATION
  11. DEPAMIDE [Concomitant]
     Indication: PRODUCT USED FOR UNKNOWN INDICATION
  12. TEMERIT [Concomitant]
     Indication: PRODUCT USED FOR UNKNOWN INDICATION
  13. COUMADINE [Concomitant]
     Indication: PRODUCT USED FOR UNKNOWN INDICATION
  14. INEXIUM [Concomitant]
     Indication: PRODUCT USED FOR UNKNOWN INDICATION
  15. CALCIUM CARBONATE W/COLECALCIFEROL [Concomitant]
     Indication: PRODUCT USED FOR UNKNOWN INDICATION
  16. PARACETAMOL [Concomitant]
     Indication: PRODUCT USED FOR UNKNOWN INDICATION
  17. CORTICOSTEROIDS [Concomitant]
     Indication: PRODUCT USED FOR UNKNOWN INDICATION
  18. IODINE [Concomitant]
     Indication: PRODUCT USED FOR UNKNOWN INDICATION
  19. PENICILLIN NOS [Concomitant]
     Indication: PRODUCT USED FOR UNKNOWN INDICATION

REACTIONS (2)
  - Fracture [Recovering/Resolving]
  - Fall [Recovered/Resolved]
